FAERS Safety Report 6083689-3 (Version None)
Quarter: 2009Q1

REPORT INFORMATION
  Report Type: 
  Country: None (occurrence: None)
  Receive Date: 20090219
  Receipt Date: 20090206
  Transmission Date: 20090719
  Serious: No
  Sender: FDA-Public Use
  Company Number: US-ASTRAZENECA-2009UW03562

PATIENT
  Age: 51 Year
  Sex: Female

DRUGS (3)
  1. SEROQUEL [Suspect]
     Dosage: 600 MG AT NIGHT, 100 MG IN THE MORNING AND 100 MG AT NOON
     Route: 048
  2. DEPAKOTE ER [Suspect]
  3. LUVOX [Concomitant]

REACTIONS (1)
  - PLATELET COUNT DECREASED [None]
